FAERS Safety Report 4728979-9 (Version None)
Quarter: 2005Q3

REPORT INFORMATION
  Report Type: 
  Country: None (occurrence: None)
  Receive Date: 20050729
  Receipt Date: 20041209
  Transmission Date: 20060218
  Serious: No
  Sender: FDA-Public Use
  Company Number: US-GLAXOSMITHKLINE-A0536762A

PATIENT
  Age: 29 Year
  Sex: Female

DRUGS (4)
  1. IMITREX [Suspect]
     Indication: MIGRAINE
     Dosage: 50MG AS REQUIRED
     Route: 048
     Dates: start: 20040823
  2. LAMISIL [Concomitant]
  3. AMITRIPTYLINE HCL [Concomitant]
  4. IBUPROFEN [Concomitant]

REACTIONS (2)
  - PAIN IN EXTREMITY [None]
  - THROAT TIGHTNESS [None]
